FAERS Safety Report 6340215-9 (Version None)
Quarter: 2009Q3

REPORT INFORMATION
  Report Type: 
  Country: None (occurrence: None)
  Receive Date: 20090903
  Receipt Date: 20090827
  Transmission Date: 20100115
  Serious: Yes (Other)
  Sender: FDA-Public Use
  Company Number: US-AMGEN-QUU362016

PATIENT
  Sex: Female

DRUGS (2)
  1. ENBREL [Suspect]
     Indication: RHEUMATOID ARTHRITIS
     Route: 058
     Dates: end: 20090820
  2. PLAQUENIL [Concomitant]
     Route: 048

REACTIONS (8)
  - ALOPECIA [None]
  - BACTERIA BLOOD IDENTIFIED [None]
  - CARDIOMYOPATHY [None]
  - CORONARY ARTERY OCCLUSION [None]
  - HYPOTENSION [None]
  - PYREXIA [None]
  - URINARY TRACT INFECTION [None]
  - WHITE BLOOD CELL COUNT INCREASED [None]
